FAERS Safety Report 24393599 (Version 2)
Quarter: 2024Q4

REPORT INFORMATION
  Report Type: Report from Study
  Country: US (occurrence: US)
  Receive Date: 20241003
  Receipt Date: 20241022
  Transmission Date: 20250115
  Serious: No
  Sender: BRISTOL-MYERS SQUIBB COMPANY
  Company Number: US-BRISTOL-MYERS SQUIBB COMPANY-2024-156168

PATIENT
  Age: 66 Year
  Sex: Male

DRUGS (2)
  1. REVLIMID [Suspect]
     Active Substance: LENALIDOMIDE
     Indication: Plasma cell myeloma
     Route: 048
     Dates: start: 20240913
  2. FORADIL [Concomitant]
     Active Substance: FORMOTEROL FUMARATE
     Indication: Product used for unknown indication

REACTIONS (4)
  - Headache [Unknown]
  - Tinnitus [Unknown]
  - Off label use [Unknown]
  - Hypoacusis [Unknown]
